FAERS Safety Report 23527539 (Version 1)
Quarter: 2024Q1

REPORT INFORMATION
  Report Type: Spontaneous
  Country: US (occurrence: US)
  Receive Date: 20240215
  Receipt Date: 20240215
  Transmission Date: 20240410
  Serious: No
  Sender: FDA-Public Use
  Company Number: US-FreseniusKabi-FK202402141

PATIENT
  Age: 70 Year
  Sex: Female

DRUGS (4)
  1. BUPIVACAINE [Suspect]
     Active Substance: BUPIVACAINE
     Indication: Pain
     Dosage: 2.703 MILLIGRAM PER MILLILITRE (CONCENTRATION: 30.0 MG/ML);
     Route: 037
  2. MORPHINE [Suspect]
     Active Substance: MORPHINE
     Indication: Pain
     Dosage: 0.0901 MG (CONCENTRATION: 1.0 MG/ML)
     Route: 037
  3. ZICONOTIDE ACETATE [Suspect]
     Active Substance: ZICONOTIDE ACETATE
     Indication: Pain
     Dosage: 0.129 MILLIGRAM; CONCENTRATION 5.0 UG/ML?FORM: INFUSION
     Route: 037
  4. ZICONOTIDE ACETATE [Suspect]
     Active Substance: ZICONOTIDE ACETATE
     Dosage: FORM: INFUSION?0.45 MICROG/ML(CONCENTRATION: 5.0MCG/ML)
     Route: 037

REACTIONS (5)
  - Incorrect dose administered by device [Unknown]
  - Hypoaesthesia [Recovered/Resolved]
  - Off label use [Unknown]
  - Drug ineffective [Not Recovered/Not Resolved]
  - Product use issue [Unknown]

NARRATIVE: CASE EVENT DATE: 20231030
